FAERS Safety Report 25005030 (Version 1)
Quarter: 2025Q1

REPORT INFORMATION
  Report Type: Report from Study
  Country: CN (occurrence: CN)
  Receive Date: 20250224
  Receipt Date: 20250224
  Transmission Date: 20250408
  Serious: Yes (Other)
  Sender: GILEAD
  Company Number: CN-GILEAD-2024-0696633

PATIENT
  Age: 46 Year
  Sex: Female

DRUGS (8)
  1. SACITUZUMAB GOVITECAN-HZIY [Suspect]
     Active Substance: SACITUZUMAB GOVITECAN-HZIY
     Indication: Breast cancer
     Dosage: 280 MG, Q3WK
     Route: 041
     Dates: start: 20241203
  2. SACITUZUMAB GOVITECAN-HZIY [Suspect]
     Active Substance: SACITUZUMAB GOVITECAN-HZIY
     Dosage: 300 MG, Q3WK
     Route: 041
  3. SACITUZUMAB GOVITECAN-HZIY [Suspect]
     Active Substance: SACITUZUMAB GOVITECAN-HZIY
     Route: 041
     Dates: start: 20241224
  4. SACITUZUMAB GOVITECAN-HZIY [Suspect]
     Active Substance: SACITUZUMAB GOVITECAN-HZIY
     Dosage: 360 MG, Q3WK
     Route: 041
     Dates: start: 20250203
  5. SACITUZUMAB GOVITECAN-HZIY [Suspect]
     Active Substance: SACITUZUMAB GOVITECAN-HZIY
     Dosage: 360 MG, Q3WK
     Route: 041
     Dates: start: 20250211
  6. ANF-RHO [Concomitant]
     Active Substance: ANF-RHO
     Route: 058
  7. TORIPALIMAB [Concomitant]
     Active Substance: TORIPALIMAB
     Dates: start: 20250203
  8. TORIPALIMAB [Concomitant]
     Active Substance: TORIPALIMAB
     Dates: start: 20250211

REACTIONS (2)
  - Myelosuppression [Unknown]
  - Gamma-glutamyltransferase increased [Unknown]

NARRATIVE: CASE EVENT DATE: 20250203
